FAERS Safety Report 9228384 (Version 1)
Quarter: 2013Q1

REPORT INFORMATION
  Report Type: Spontaneous
  Country: US (occurrence: None)
  Receive Date: 20121009
  Receipt Date: 20121009
  Transmission Date: 20140127
  Serious: Yes (Other)
  Sender: FDA-Public Use
  Company Number: 127212

PATIENT
  Age: 37 Year
  Sex: Female

DRUGS (1)
  1. LEVETIRACETAM EXTENDED-RELEASE TABLETS (LEVETIRACETAM EXTENDED-RELEASE TABLETS 500MG) (500 MILLIGRAM) (LEVETIRACETAM) [Suspect]
     Indication: CONVULSION
     Route: 048
     Dates: start: 20120629

REACTIONS (1)
  - Convulsion [None]
